FAERS Safety Report 7412123-3 (Version None)
Quarter: 2011Q2

REPORT INFORMATION
  Report Type: 
  Country: None (occurrence: None)
  Receive Date: 20110413
  Receipt Date: 20110314
  Transmission Date: 20111010
  Serious: Yes (Hospitalization)
  Sender: FDA-Public Use
  Company Number: US-BAYER-201035812NA

PATIENT
  Age: 53 Year
  Sex: Female

DRUGS (6)
  1. YASMIN [Suspect]
     Indication: DYSMENORRHOEA
  2. OCELLA [Suspect]
     Indication: HORMONE REPLACEMENT THERAPY
     Route: 048
     Dates: start: 20020101, end: 20030501
  3. YAZ [Suspect]
     Indication: DYSMENORRHOEA
  4. YASMIN [Suspect]
     Indication: HORMONE REPLACEMENT THERAPY
     Route: 048
     Dates: start: 20020101, end: 20030501
  5. OCELLA [Suspect]
     Indication: DYSMENORRHOEA
  6. YAZ [Suspect]
     Indication: HORMONE REPLACEMENT THERAPY
     Route: 048
     Dates: start: 20020101, end: 20030501

REACTIONS (1)
  - DEEP VEIN THROMBOSIS [None]
